FAERS Safety Report 9241646 (Version 3)
Quarter: 2013Q3

REPORT INFORMATION
  Report Type: Report from Study
  Country: US (occurrence: US)
  Receive Date: 20130419
  Receipt Date: 20130819
  Transmission Date: 20140515
  Serious: Yes (Hospitalization, Other)
  Sender: FDA-Public Use
  Company Number: PHEH2013US000923

PATIENT
  Age: 17 Year
  Sex: Female

DRUGS (3)
  1. AFINITOR [Suspect]
     Indication: ASTROCYTOMA, LOW GRADE
     Dosage: 7.5 MG, QD
     Route: 048
     Dates: start: 20101220, end: 20130715
  2. AFINITOR [Suspect]
     Dosage: 7.5 MG, UNK
     Dates: start: 20130808
  3. PLAQUENIL [Concomitant]

REACTIONS (5)
  - Pelvic neoplasm [Recovered/Resolved]
  - Influenza [Unknown]
  - Vomiting [Unknown]
  - Dizziness [Unknown]
  - Bronchitis [Unknown]
